FAERS Safety Report 6116838-9 (Version None)
Quarter: 2009Q1

REPORT INFORMATION
  Report Type: 
  Country: None (occurrence: None)
  Receive Date: 20090314
  Receipt Date: 20081229
  Transmission Date: 20090719
  Serious: No
  Sender: FDA-Public Use
  Company Number: US-ABBOTT-08P-163-0495118-00

PATIENT
  Sex: Female

DRUGS (2)
  1. HUMIRA [Suspect]
     Indication: RHEUMATOID ARTHRITIS
     Dates: start: 20080527
  2. FLOVENT [Concomitant]
     Indication: ASTHMA

REACTIONS (4)
  - ARTHRALGIA [None]
  - BACK PAIN [None]
  - CELLULITIS [None]
  - ORAL FUNGAL INFECTION [None]
